FAERS Safety Report 17758529 (Version 1)
Quarter: 2020Q2

REPORT INFORMATION
  Report Type: Spontaneous
  Country: TW (occurrence: TW)
  Receive Date: 20200507
  Receipt Date: 20200507
  Transmission Date: 20200714
  Serious: Yes (Hospitalization, Other)
  Sender: FDA-Public Use
  Company Number: TW-ELI_LILLY_AND_COMPANY-TW202005001797

PATIENT
  Age: 43 Year
  Sex: Female

DRUGS (3)
  1. OLANZAPINE 10MG [Suspect]
     Active Substance: OLANZAPINE
     Indication: SCHIZOAFFECTIVE DISORDER
     Dosage: 20 MG, DAILY
     Route: 065
  2. LITHIUM CARBONATE. [Suspect]
     Active Substance: LITHIUM CARBONATE
     Indication: PRODUCT USED FOR UNKNOWN INDICATION
     Dosage: 900 MG, DAILY
     Route: 065
  3. FLURAZEPAM [Suspect]
     Active Substance: FLURAZEPAM HYDROCHLORIDE
     Indication: PRODUCT USED FOR UNKNOWN INDICATION
     Dosage: 30 MG, DAILY
     Route: 065

REACTIONS (8)
  - Hallucination, auditory [Unknown]
  - Depressed mood [Unknown]
  - Weight increased [Recovered/Resolved]
  - Suicidal ideation [Unknown]
  - Fatigue [Unknown]
  - Increased appetite [Unknown]
  - Hepatic cirrhosis [Recovered/Resolved]
  - Dyslipidaemia [Unknown]
